FAERS Safety Report 9218193 (Version 1)
Quarter: 2013Q2

REPORT INFORMATION
  Report Type: Report from Study
  Country: CH (occurrence: CH)
  Receive Date: 20130408
  Receipt Date: 20130408
  Transmission Date: 20140414
  Serious: Yes (Death)
  Sender: FDA-Public Use
  Company Number: CH-B.I. PHARMACEUTICALS,INC./RIDGEFIELD-2013-BI-09256GD

PATIENT
  Sex: Female

DRUGS (2)
  1. VIRAMUNE [Suspect]
     Indication: HIV INFECTION
  2. ANTIRETROVIRAL DRUGS [Concomitant]
     Indication: HIV INFECTION

REACTIONS (2)
  - Hepatic failure [Fatal]
  - Hypersensitivity [Fatal]
